FAERS Safety Report 8356771-5 (Version None)
Quarter: 2012Q2

REPORT INFORMATION
  Report Type: 
  Country: None (occurrence: None)
  Receive Date: 20120511
  Receipt Date: 20120511
  Transmission Date: 20120825
  Serious: Yes (Disabling)
  Sender: FDA-Public Use
  Company Number: None

PATIENT
  Age: 53 Year
  Sex: Female
  Weight: 47.6277 kg

DRUGS (2)
  1. LEVAQUIN [Suspect]
     Indication: DIVERTICULITIS
     Dosage: 500 MG 1 X
     Dates: start: 20120429, end: 20120506
  2. LEVAQUIN [Suspect]
     Indication: ABSCESS
     Dosage: 500 MG 1 X
     Dates: start: 20120429, end: 20120506

REACTIONS (4)
  - GAIT DISTURBANCE [None]
  - TENDON PAIN [None]
  - SWELLING [None]
  - TENDON DISORDER [None]
